FAERS Safety Report 10453274 (Version 5)
Quarter: 2016Q1

REPORT INFORMATION
  Report Type: Spontaneous
  Country: US (occurrence: US)
  Receive Date: 20140915
  Receipt Date: 20160122
  Transmission Date: 20160525
  Serious: No
  Sender: FDA-Public Use
  Company Number: US-PFIZER INC-2014252413

PATIENT
  Age: 73 Year
  Sex: Female
  Weight: 54 kg

DRUGS (3)
  1. ESTRADIOL. [Suspect]
     Active Substance: ESTRADIOL
     Dosage: 200, 1X/DAY
     Dates: start: 2014
  2. ESTRADIOL. [Suspect]
     Active Substance: ESTRADIOL
     Indication: OESTROGEN REPLACEMENT THERAPY
     Dosage: 2 MG, 1X/DAY
     Dates: start: 201411
  3. ESTRADIOL. [Suspect]
     Active Substance: ESTRADIOL
     Indication: HORMONE LEVEL ABNORMAL
     Dosage: 2 MG, 1DF, 1X/DAY
     Route: 048

REACTIONS (6)
  - Urticaria [Recovered/Resolved]
  - Hair colour changes [Unknown]
  - Libido decreased [Unknown]
  - Alopecia [Unknown]
  - Emotional disorder [Unknown]
  - Vulvovaginal dryness [Unknown]

NARRATIVE: CASE EVENT DATE: 2014
